FAERS Safety Report 18092354 (Version 3)
Quarter: 2021Q3

REPORT INFORMATION
  Report Type: Other
  Country: ES (occurrence: ES)
  Receive Date: 20200730
  Receipt Date: 20210714
  Transmission Date: 20211014
  Serious: No
  Sender: FDA-Public Use
  Company Number: ES-ROCHE-2650314

PATIENT
  Age: 44 Year
  Sex: Female

DRUGS (21)
  1. PARACETAMOL [Concomitant]
     Active Substance: ACETAMINOPHEN
     Route: 065
     Dates: start: 20200203, end: 20200203
  2. URBASON [Concomitant]
     Active Substance: METHYLPREDNISOLONE
     Route: 030
     Dates: start: 20200203, end: 20200203
  3. SATIVEX [Concomitant]
     Active Substance: NABIXIMOLS
  4. TIZANIDINE. [Concomitant]
     Active Substance: TIZANIDINE
     Route: 048
  5. ASPIRIN. [Concomitant]
     Active Substance: ASPIRIN
     Indication: RHEUMATOID ARTHRITIS
     Route: 048
     Dates: start: 2014
  6. PANTOPRAZOLE [Concomitant]
     Active Substance: PANTOPRAZOLE
     Route: 042
     Dates: start: 20200203, end: 20200203
  7. MELATONINE [Concomitant]
     Active Substance: MELATONIN
     Route: 048
  8. METHYLPREDNISOLONE. [Concomitant]
     Active Substance: METHYLPREDNISOLONE
     Route: 042
     Dates: start: 20200203
  9. OCRELIZUMAB. [Suspect]
     Active Substance: OCRELIZUMAB
     Indication: PRIMARY PROGRESSIVE MULTIPLE SCLEROSIS
     Dosage: SUBSEQUENT THERAPY RECEIVED ON:17/FEB/2020 AND 03/AUG/2020, 300 MG/250 ML
     Route: 042
     Dates: start: 20200203
  10. PARACETAMOL [Concomitant]
     Active Substance: ACETAMINOPHEN
     Route: 065
     Dates: start: 20200803, end: 20200803
  11. POLARAMINE [Concomitant]
     Active Substance: DEXCHLORPHENIRAMINE MALEATE
     Route: 042
     Dates: start: 20200217, end: 20200217
  12. POLARAMINE [Concomitant]
     Active Substance: DEXCHLORPHENIRAMINE MALEATE
     Route: 048
     Dates: start: 20200203, end: 20200203
  13. METHYLPREDNISOLONE. [Concomitant]
     Active Substance: METHYLPREDNISOLONE
     Route: 042
     Dates: start: 20200803, end: 20200803
  14. OMEPRAZOL [Concomitant]
     Active Substance: OMEPRAZOLE
     Indication: CHRONIC GASTRITIS
     Route: 048
     Dates: start: 2010
  15. CALCIUM [Concomitant]
     Active Substance: CALCIUM
     Route: 048
  16. FAMPRIDINE [Concomitant]
     Active Substance: DALFAMPRIDINE
     Route: 048
     Dates: start: 20140420
  17. METHYLPREDNISOLONE. [Concomitant]
     Active Substance: METHYLPREDNISOLONE
     Route: 042
     Dates: start: 20200217, end: 20200217
  18. CEFUROXIME. [Concomitant]
     Active Substance: CEFUROXIME
     Indication: URINARY TRACT INFECTION
  19. IRON [Concomitant]
     Active Substance: IRON
  20. PARACETAMOL [Concomitant]
     Active Substance: ACETAMINOPHEN
     Indication: RHEUMATOID ARTHRITIS
     Route: 048
  21. POLARAMINE [Concomitant]
     Active Substance: DEXCHLORPHENIRAMINE MALEATE
     Route: 042
     Dates: start: 20200803, end: 20200803

REACTIONS (1)
  - Oral herpes [Recovered/Resolved]

NARRATIVE: CASE EVENT DATE: 20200207
